FAERS Safety Report 15172205 (Version 2)
Quarter: 2019Q4

REPORT INFORMATION
  Report Type: Report from Study
  Country: FR (occurrence: FR)
  Receive Date: 20180720
  Receipt Date: 20191025
  Transmission Date: 20200122
  Serious: Yes (Disabling)
  Sender: FDA-Public Use
  Company Number: FR-PFIZER INC-2018289407

PATIENT
  Age: 19 Year
  Sex: Female
  Weight: 41.5 kg

DRUGS (2)
  1. TAZOCILLINE [Suspect]
     Active Substance: PIPERACILLIN SODIUM\TAZOBACTAM SODIUM
     Indication: INFECTION
     Dosage: 4 G, QD
     Route: 042
     Dates: start: 20180531
  2. TAZOCILLINE [Suspect]
     Active Substance: PIPERACILLIN SODIUM\TAZOBACTAM SODIUM
     Dosage: 6 G, BID
     Route: 042
     Dates: start: 20180608

REACTIONS (1)
  - Colitis [Recovered/Resolved with Sequelae]

NARRATIVE: CASE EVENT DATE: 20180614
